FAERS Safety Report 9890490 (Version 1)
Quarter: 2014Q1

REPORT INFORMATION
  Report Type: Spontaneous
  Country: CA (occurrence: CA)
  Receive Date: 20140212
  Receipt Date: 20140212
  Transmission Date: 20141002
  Serious: Yes (Other)
  Sender: FDA-Public Use
  Company Number: CA-JNJFOC-20140204587

PATIENT
  Sex: Male

DRUGS (1)
  1. NICODERM [Suspect]
     Indication: EX-TOBACCO USER
     Route: 061

REACTIONS (1)
  - Myocardial infarction [Unknown]
